APPROVED DRUG PRODUCT: STIE-CORT
Active Ingredient: HYDROCORTISONE
Strength: 2.5%
Dosage Form/Route: LOTION;TOPICAL
Application: A089074 | Product #001
Applicant: PADAGIS US LLC
Approved: Nov 26, 1985 | RLD: No | RS: Yes | Type: RX